FAERS Safety Report 13517146 (Version 1)
Quarter: 2017Q2

REPORT INFORMATION
  Report Type: Spontaneous
  Country: US (occurrence: US)
  Receive Date: 20170505
  Receipt Date: 20170505
  Transmission Date: 20170830
  Serious: Yes (Hospitalization)
  Sender: FDA-Public Use
  Company Number: None

PATIENT
  Age: 68 Year
  Sex: Male
  Weight: 88.8 kg

DRUGS (11)
  1. XARELTO [Suspect]
     Active Substance: RIVAROXABAN
     Indication: ATRIAL FIBRILLATION
     Route: 048
  2. NAPROSYN [Suspect]
     Active Substance: NAPROXEN
     Indication: CORONARY ARTERY DISEASE
     Route: 048
  3. NAPROSYN [Suspect]
     Active Substance: NAPROXEN
     Indication: CORONARY ARTERY BYPASS
     Route: 048
  4. ASCORBIC ACID. [Concomitant]
     Active Substance: ASCORBIC ACID
  5. FE [Concomitant]
     Active Substance: IRON
  6. LOPRESSOR [Concomitant]
     Active Substance: METOPROLOL TARTRATE
  7. METFORMIN [Concomitant]
     Active Substance: METFORMIN HYDROCHLORIDE
  8. BUMEX [Concomitant]
     Active Substance: BUMETANIDE
  9. PROTONIX [Concomitant]
     Active Substance: PANTOPRAZOLE SODIUM
  10. COZAAR [Concomitant]
     Active Substance: LOSARTAN POTASSIUM
  11. K-DUR [Concomitant]
     Active Substance: POTASSIUM CHLORIDE

REACTIONS (4)
  - Gastritis [None]
  - Ulcer [None]
  - Gastrointestinal haemorrhage [None]
  - Iron deficiency anaemia [None]

NARRATIVE: CASE EVENT DATE: 20161211
